FAERS Safety Report 8943088 (Version 2)
Quarter: 2012Q4

REPORT INFORMATION
  Report Type: 
  Country: JP (occurrence: JP)
  Receive Date: 20121204
  Receipt Date: 20121211
  Transmission Date: 20130627
  Serious: Yes (Hospitalization)
  Sender: FDA-Public Use
  Company Number: JP-EISAI INC-E2090-02435-SPO-JP

PATIENT
  Age: 1 Year
  Sex: Female

DRUGS (4)
  1. EXCEGRAN [Suspect]
     Indication: WEST^S SYNDROME
     Dosage: Unknown
     Route: 048
     Dates: end: 20121122
  2. EXCEGRAN [Suspect]
     Dosage: 136 mg/day
     Route: 048
     Dates: start: 20121123, end: 20121126
  3. HYSERENIN [Concomitant]
     Indication: WEST^S SYNDROME
     Dosage: Unknown
     Route: 048
     Dates: end: 20121122
  4. HYSERENIN [Concomitant]
     Dosage: 0.875 gram/day
     Route: 048
     Dates: start: 20121123, end: 20121126

REACTIONS (3)
  - Platelet count decreased [Recovered/Resolved]
  - White blood cell count decreased [Recovered/Resolved]
  - Rash [Unknown]
